FAERS Safety Report 18302821 (Version 3)
Quarter: 2020Q4

REPORT INFORMATION
  Report Type: Spontaneous
  Country: US (occurrence: US)
  Receive Date: 20200923
  Receipt Date: 20201104
  Transmission Date: 20210113
  Serious: Yes (Other)
  Sender: FDA-Public Use
  Company Number: US-PFIZER INC-2020366975

PATIENT
  Age: 62 Year
  Sex: Female

DRUGS (1)
  1. METHOTREXATE SODIUM. [Suspect]
     Active Substance: METHOTREXATE SODIUM
     Dosage: UNK
     Dates: start: 201103

REACTIONS (8)
  - Intervertebral disc disorder [Not Recovered/Not Resolved]
  - General physical health deterioration [Unknown]
  - Myelopathy [Not Recovered/Not Resolved]
  - Pain [Unknown]
  - Quality of life decreased [Unknown]
  - Drug ineffective [Unknown]
  - Discomfort [Unknown]
  - Asthenia [Unknown]
